FAERS Safety Report 14947722 (Version 2)
Quarter: 2018Q2

REPORT INFORMATION
  Report Type: Spontaneous
  Country: DK (occurrence: DK)
  Receive Date: 20180529
  Receipt Date: 20180620
  Transmission Date: 20180711
  Serious: Yes (Death, Other)
  Sender: FDA-Public Use
  Company Number: DK-SA-2018SA138706

PATIENT
  Age: 94 Year
  Sex: Female

DRUGS (2)
  1. LANTUS SOLOSTAR [Suspect]
     Active Substance: INSULIN GLARGINE
     Indication: TYPE 1 DIABETES MELLITUS
     Dosage: UNKNOWN
     Route: 065
  2. NOVORAPID [Suspect]
     Active Substance: INSULIN ASPART
     Indication: TYPE 1 DIABETES MELLITUS
     Dosage: UNKNOWN
     Route: 065

REACTIONS (5)
  - Device malfunction [Fatal]
  - Death [Fatal]
  - Device issue [Fatal]
  - Blood glucose abnormal [Fatal]
  - Device failure [Fatal]

NARRATIVE: CASE EVENT DATE: 201804
